FAERS Safety Report 9050449 (Version 2)
Quarter: 2013Q1

REPORT INFORMATION
  Report Type: Spontaneous
  Country: DE (occurrence: DE)
  Receive Date: 20130205
  Receipt Date: 20130214
  Transmission Date: 20140127
  Serious: Yes (Hospitalization)
  Sender: FDA-Public Use
  Company Number: DE-JNJFOC-20121200025

PATIENT
  Sex: Female
  Weight: 59 kg

DRUGS (4)
  1. PALEXIA RETARD [Suspect]
     Indication: PRODUCT USED FOR UNKNOWN INDICATION
     Dosage: 3 PER DAY AT MID DAY WHEN NEEDED
     Route: 048
     Dates: start: 20110802, end: 20120501
  2. PALEXIA RETARD [Suspect]
     Indication: PRODUCT USED FOR UNKNOWN INDICATION
     Route: 048
     Dates: start: 201101, end: 20110802
  3. PANTOZOL [Concomitant]
     Indication: ANKYLOSING SPONDYLITIS
     Route: 048
     Dates: start: 201104
  4. INDOMETACIN [Concomitant]
     Indication: ANKYLOSING SPONDYLITIS
     Route: 065
     Dates: start: 201104, end: 201105

REACTIONS (5)
  - Eye movement disorder [Recovering/Resolving]
  - Visual field defect [Recovering/Resolving]
  - Strabismus [Recovering/Resolving]
  - Visual impairment [Recovering/Resolving]
  - Diplopia [Recovering/Resolving]
